FAERS Safety Report 21160237 (Version 2)
Quarter: 2022Q3

REPORT INFORMATION
  Report Type: Spontaneous
  Country: NP (occurrence: NP)
  Receive Date: 20220802
  Receipt Date: 20220823
  Transmission Date: 20221027
  Serious: Yes (Life-Threatening, Hospitalization, Other)
  Sender: FDA-Public Use
  Company Number: NP-Accord-271621

PATIENT
  Age: 25 Year
  Sex: Male

DRUGS (4)
  1. AMLODIPINE [Suspect]
     Active Substance: AMLODIPINE BESYLATE
     Dosage: 10 TABLETS OF AMLODIPINE (10 MG/TABLET, TOTAL 100MG)
     Route: 048
  2. CLONAZEPAM [Suspect]
     Active Substance: CLONAZEPAM
     Dosage: 30 TABLETS OF CLONAZEPAM (0.5 MG/TABLET, TOTAL 15MG) 1 MONTH AGO
     Route: 048
  3. SERTRALINE [Concomitant]
     Active Substance: SERTRALINE HYDROCHLORIDE
     Route: 048
  4. CLONAZEPAM [Suspect]
     Active Substance: CLONAZEPAM
     Dosage: 60 TABLETS OF CLONAZEPAM (0.5 MG/TABLET, TOTAL 30MG)

REACTIONS (11)
  - Intentional overdose [Unknown]
  - Somnolence [Unknown]
  - Blood pressure decreased [Recovered/Resolved]
  - Toxicity to various agents [Unknown]
  - Suicide attempt [Unknown]
  - Respiratory alkalosis [Recovered/Resolved]
  - Depressed level of consciousness [Recovered/Resolved]
  - Sinus tachycardia [Recovered/Resolved]
  - Electrocardiogram QT prolonged [Recovered/Resolved]
  - Pyrexia [Recovered/Resolved]
  - Hypokalaemia [Recovered/Resolved]
